FAERS Safety Report 7530500-7 (Version None)
Quarter: 2011Q2

REPORT INFORMATION
  Report Type: 
  Country: None (occurrence: None)
  Receive Date: 20110607
  Receipt Date: 20110525
  Transmission Date: 20111010
  Serious: Yes (Hospitalization)
  Sender: FDA-Public Use
  Company Number: US-UCBSA-027728

PATIENT
  Sex: Male
  Weight: 95.25 kg

DRUGS (1)
  1. CIMZIA [Suspect]
     Indication: CROHN'S DISEASE
     Route: 058
     Dates: start: 20091118, end: 20110301

REACTIONS (9)
  - FEELING DRUNK [None]
  - HEADACHE [None]
  - BALANCE DISORDER [None]
  - HYPERSENSITIVITY [None]
  - VOMITING [None]
  - HYPOAESTHESIA [None]
  - NAUSEA [None]
  - DIZZINESS [None]
  - MENTAL STATUS CHANGES [None]
